FAERS Safety Report 7520882-4 (Version None)
Quarter: 2011Q2

REPORT INFORMATION
  Report Type: 
  Country: None (occurrence: None)
  Receive Date: 20110603
  Receipt Date: 20101119
  Transmission Date: 20111010
  Serious: Yes (Hospitalization)
  Sender: FDA-Public Use
  Company Number: US-BAYER-201041976NA

PATIENT
  Age: 68 Year
  Sex: Male

DRUGS (2)
  1. COUMADIN [Concomitant]
     Indication: PRODUCT USED FOR UNKNOWN INDICATION
  2. AVELOX [Suspect]
     Indication: EPISTAXIS
     Route: 048
     Dates: start: 20101115, end: 20101117

REACTIONS (2)
  - URINARY RETENTION [None]
  - OEDEMA PERIPHERAL [None]
